FAERS Safety Report 17934718 (Version 1)
Quarter: 2020Q2

REPORT INFORMATION
  Report Type: Spontaneous
  Country: CA (occurrence: CA)
  Receive Date: 20200624
  Receipt Date: 20200624
  Transmission Date: 20200714
  Serious: Yes (Other)
  Sender: FDA-Public Use
  Company Number: CA-TEVA-2020-CA-1792478

PATIENT
  Sex: Female
  Weight: 97 kg

DRUGS (23)
  1. NITROGLYCERIN. [Concomitant]
     Active Substance: NITROGLYCERIN
  2. CAFFEINE;CODEINE;PARACETAMOL [Concomitant]
     Active Substance: ACETAMINOPHEN\CAFFEINE\CODEINE
  3. METFORMIN [Concomitant]
     Active Substance: METFORMIN HYDROCHLORIDE
     Route: 065
  4. METHYLPREDNISOLONE. [Concomitant]
     Active Substance: METHYLPREDNISOLONE
  5. PREGABALIN. [Concomitant]
     Active Substance: PREGABALIN
  6. WINPRED [Concomitant]
     Active Substance: PREDNISONE
     Route: 065
  7. FUROSEMIDE. [Concomitant]
     Active Substance: FUROSEMIDE
  8. LANTUS [Concomitant]
     Active Substance: INSULIN GLARGINE
  9. APO-PREDNISONE [Concomitant]
     Active Substance: PREDNISONE
     Route: 065
  10. DIPHENHYDRAMINE. [Concomitant]
     Active Substance: DIPHENHYDRAMINE
  11. RITUXIMAB. [Suspect]
     Active Substance: RITUXIMAB
     Indication: RHEUMATOID ARTHRITIS
     Route: 042
  12. JAMP-CALCIUM + VITAMIN D [Concomitant]
     Route: 065
  13. INSULIN HUMAN [Concomitant]
     Active Substance: INSULIN HUMAN
  14. HYDROCHLOROTHIAZIDE. [Suspect]
     Active Substance: HYDROCHLOROTHIAZIDE
     Indication: PRODUCT USED FOR UNKNOWN INDICATION
     Dosage: 50 MG
     Route: 065
  15. DIAMICRON [Concomitant]
     Active Substance: GLICLAZIDE
     Route: 065
  16. EURO-FER [Concomitant]
     Route: 065
  17. NOVORAPID [Concomitant]
     Active Substance: INSULIN ASPART
     Route: 058
  18. LIRAGLUTIDE [Suspect]
     Active Substance: LIRAGLUTIDE
     Indication: DIABETES MELLITUS
     Route: 065
  19. ACETAMINOPHEN. [Concomitant]
     Active Substance: ACETAMINOPHEN
  20. APO-BISOPROLOL [Concomitant]
     Active Substance: BISOPROLOL FUMARATE
     Route: 065
  21. LOSEC [Concomitant]
     Active Substance: OMEPRAZOLE
  22. NAPROXEN. [Concomitant]
     Active Substance: NAPROXEN
  23. VENTOLIN [Concomitant]
     Active Substance: ALBUTEROL SULFATE

REACTIONS (13)
  - Arthralgia [Not Recovered/Not Resolved]
  - Cardiac discomfort [Not Recovered/Not Resolved]
  - Diabetes mellitus inadequate control [Not Recovered/Not Resolved]
  - Headache [Not Recovered/Not Resolved]
  - Constipation [Not Recovered/Not Resolved]
  - Dyspnoea [Not Recovered/Not Resolved]
  - Joint swelling [Not Recovered/Not Resolved]
  - Nausea [Not Recovered/Not Resolved]
  - Peripheral swelling [Not Recovered/Not Resolved]
  - Weight decreased [Not Recovered/Not Resolved]
  - Cataract [Not Recovered/Not Resolved]
  - Weight increased [Not Recovered/Not Resolved]
  - Infusion related reaction [Not Recovered/Not Resolved]
